FAERS Safety Report 16282999 (Version 2)
Quarter: 2019Q2

REPORT INFORMATION
  Report Type: Spontaneous
  Country: RU (occurrence: RU)
  Receive Date: 20190507
  Receipt Date: 20190517
  Transmission Date: 20190711
  Serious: Yes (Other)
  Sender: FDA-Public Use
  Company Number: PHHY2019RU102085

PATIENT
  Age: 3 Year
  Sex: Male

DRUGS (7)
  1. DEXAMETHASONE. [Suspect]
     Active Substance: DEXAMETHASONE
     Indication: B-CELL LYMPHOMA
     Route: 065
  2. IFOSFAMIDE. [Suspect]
     Active Substance: IFOSFAMIDE
     Indication: B-CELL LYMPHOMA
     Route: 065
  3. METHOTREXATE. [Suspect]
     Active Substance: METHOTREXATE
     Indication: B-CELL LYMPHOMA
     Dosage: 5 G/M2, QD
     Route: 065
  4. VINCRISTINE [Suspect]
     Active Substance: VINCRISTINE
     Indication: B-CELL LYMPHOMA
     Route: 065
  5. CYTOSAR [Suspect]
     Active Substance: CYTARABINE
     Indication: B-CELL LYMPHOMA
     Route: 065
  6. RITUXIMAB. [Concomitant]
     Active Substance: RITUXIMAB
     Indication: B-CELL LYMPHOMA
     Route: 065
  7. VEPESID [Suspect]
     Active Substance: ETOPOSIDE
     Indication: B-CELL LYMPHOMA
     Route: 065

REACTIONS (13)
  - Cheilitis [Recovered/Resolved]
  - Drug intolerance [Unknown]
  - Oesophagitis [Recovered/Resolved]
  - Lymphadenitis [Recovered/Resolved]
  - Product use issue [Unknown]
  - Generalised oedema [Recovered/Resolved]
  - Product use in unapproved indication [Unknown]
  - Cellulitis [Recovered/Resolved]
  - Mucosal inflammation [Recovered/Resolved]
  - Bone marrow failure [Recovered/Resolved]
  - Toxicity to various agents [Unknown]
  - Dermatitis exfoliative [Recovered/Resolved]
  - Enterocolitis [Recovered/Resolved]
